FAERS Safety Report 20707350 (Version 2)
Quarter: 2022Q2

REPORT INFORMATION
  Report Type: Spontaneous
  Country: CN (occurrence: CN)
  Receive Date: 20220413
  Receipt Date: 20220421
  Transmission Date: 20220721
  Serious: Yes (Other)
  Sender: FDA-Public Use
  Company Number: CN-MLMSERVICE-20220401-3448796-1

PATIENT
  Age: 27 Year
  Sex: Male

DRUGS (3)
  1. METHYLPREDNISOLONE [Suspect]
     Active Substance: METHYLPREDNISOLONE
     Indication: Chronic inflammatory demyelinating polyradiculoneuropathy
     Dosage: WITH SUBSEQUENT DOSAGE REDUCTIONS
  2. METHYLPREDNISOLONE [Suspect]
     Active Substance: METHYLPREDNISOLONE
     Dosage: WITH SUBSEQUENT DOSAGE REDUCTIONS
  3. HUMAN IMMUNOGLOBULIN G [Concomitant]
     Active Substance: HUMAN IMMUNOGLOBULIN G
     Indication: Chronic inflammatory demyelinating polyradiculoneuropathy
     Dosage: 0.4/KG/D N = 12
     Route: 042

REACTIONS (5)
  - Steroid diabetes [Recovering/Resolving]
  - Hypertension [Recovering/Resolving]
  - Hepatic steatosis [Unknown]
  - Obesity [Recovering/Resolving]
  - Hyperlipidaemia [Recovering/Resolving]
